FAERS Safety Report 14843480 (Version 1)
Quarter: 2018Q2

REPORT INFORMATION
  Report Type: Spontaneous
  Country: US (occurrence: US)
  Receive Date: 20180503
  Receipt Date: 20180503
  Transmission Date: 20180711
  Serious: Yes (Hospitalization)
  Sender: FDA-Public Use
  Company Number: US-TEVA-2018-US-887771

PATIENT
  Age: 30 Year
  Sex: Male

DRUGS (3)
  1. LOPERAMIDE [Suspect]
     Active Substance: LOPERAMIDE
     Indication: DRUG WITHDRAWAL SYNDROME
     Dosage: EXCESSIVE ORAL LOPERAMIDE INGESTION; AT PEAK INGESTED 250 TABLETS OF LOPERAMIDE 2MG PER DAY
     Route: 048
  2. LOPERAMIDE [Suspect]
     Active Substance: LOPERAMIDE
     Indication: DRUG WITHDRAWAL SYNDROME
     Dosage: TWO DAYS BEFORE PRESENTATION: 140MG
     Route: 048
  3. LOPERAMIDE [Suspect]
     Active Substance: LOPERAMIDE
     Indication: DRUG WITHDRAWAL SYNDROME
     Dosage: 100MG
     Route: 048

REACTIONS (10)
  - Piloerection [Recovering/Resolving]
  - Drug withdrawal syndrome [Recovering/Resolving]
  - Intentional product misuse [Unknown]
  - Diarrhoea [Recovering/Resolving]
  - Hyperhidrosis [Recovering/Resolving]
  - Vomiting [Recovering/Resolving]
  - Overdose [Unknown]
  - Yawning [Recovering/Resolving]
  - Insomnia [Recovering/Resolving]
  - Electrocardiogram QT prolonged [Recovering/Resolving]
